FAERS Safety Report 23839150 (Version 2)
Quarter: 2024Q2

REPORT INFORMATION
  Report Type: Spontaneous
  Country: HR (occurrence: HR)
  Receive Date: 20240509
  Receipt Date: 20240603
  Transmission Date: 20240716
  Serious: Yes (Hospitalization, Other)
  Sender: FDA-Public Use
  Company Number: HR-BAYER-2024A067946

PATIENT
  Age: 82 Year
  Sex: Female

DRUGS (15)
  1. XARELTO [Suspect]
     Active Substance: RIVAROXABAN
     Indication: Product used for unknown indication
     Dosage: 15 MG
     Route: 048
  2. XARELTO [Suspect]
     Active Substance: RIVAROXABAN
     Dosage: 20 MG
     Route: 048
  3. ENTRESTO [Concomitant]
     Active Substance: SACUBITRIL\VALSARTAN
  4. FUROSEMIDE [Concomitant]
     Active Substance: FUROSEMIDE
     Dosage: 40 MG
  5. POTASSIUM CHLORIDE [Concomitant]
     Active Substance: POTASSIUM CHLORIDE
  6. ATORVASTATIN CALCIUM [Concomitant]
     Active Substance: ATORVASTATIN CALCIUM
     Dosage: 10 MG
  7. BISOPROLOL FUMARATE [Concomitant]
     Active Substance: BISOPROLOL FUMARATE
     Dosage: 5 MG
  8. ALDACTONE [Concomitant]
     Active Substance: SPIRONOLACTONE
     Dosage: 100 MG
  9. ESCITALOPRAM OXALATE [Concomitant]
     Active Substance: ESCITALOPRAM OXALATE
     Dosage: 10 MG
  10. RAZAGILIN BELUPO [Concomitant]
     Dosage: 1 MG
  11. INSULIN ASPART [Concomitant]
     Active Substance: INSULIN ASPART
  12. GLUFORMIN [METFORMIN HYDROCHLORIDE] [Concomitant]
     Dosage: 500 MG
  13. VILDAGLIPTIN / METFORMIN TEVA [Concomitant]
     Dosage: 50 MG, BID
  14. LANTUS [Concomitant]
     Active Substance: INSULIN GLARGINE
  15. DAPAGLIFLOZIN [Concomitant]
     Active Substance: DAPAGLIFLOZIN

REACTIONS (9)
  - Sepsis [Unknown]
  - Acute kidney injury [Unknown]
  - Coronary artery occlusion [Unknown]
  - Dehydration [Unknown]
  - Hypotension [Unknown]
  - Heart rate decreased [Unknown]
  - Cardiovascular disorder [Unknown]
  - Cold sweat [Unknown]
  - Cardiac murmur [Unknown]
